FAERS Safety Report 6385435-2 (Version None)
Quarter: 2009Q4

REPORT INFORMATION
  Report Type: 
  Country: None (occurrence: None)
  Receive Date: 20091002
  Receipt Date: 20080902
  Transmission Date: 20100525
  Serious: No
  Sender: FDA-Public Use
  Company Number: US-ASTRAZENECA-2008UW17956

PATIENT
  Age: 67 Year
  Sex: Female
  Weight: 99.8 kg

DRUGS (9)
  1. ARIMIDEX [Suspect]
     Route: 048
     Dates: start: 20050901
  2. SYNTHROID [Concomitant]
  3. RISPERDAL [Concomitant]
  4. AVAPRO [Concomitant]
  5. DEPAKOTE [Concomitant]
  6. WELLBUTRIN [Concomitant]
  7. CALCIUM WITH D [Concomitant]
  8. XANAX [Concomitant]
  9. GABATIN [Concomitant]

REACTIONS (2)
  - DYSPEPSIA [None]
  - HOT FLUSH [None]
